FAERS Safety Report 5275299-2 (Version None)
Quarter: 2007Q1

REPORT INFORMATION
  Report Type: 
  Country: None (occurrence: None)
  Receive Date: 20070326
  Receipt Date: 20070319
  Transmission Date: 20070707
  Serious: Yes (Life-Threatening, Hospitalization, Disabling, Other)
  Sender: FDA-Public Use
  Company Number: GB-JNJFOC-20070301879

PATIENT
  Age: 67 Year
  Sex: Female

DRUGS (22)
  1. ABCIXIMAB [Suspect]
     Indication: DRUG USE FOR UNKNOWN INDICATION
     Route: 042
  2. ASPIRIN [Suspect]
     Route: 048
  3. ASPIRIN [Suspect]
     Indication: THROMBOLYSIS
     Route: 048
  4. CLOPIDOGREL [Suspect]
     Route: 048
  5. CLOPIDOGREL [Suspect]
     Indication: THROMBOLYSIS
     Route: 048
  6. HEPARIN [Suspect]
     Route: 042
  7. HEPARIN [Suspect]
     Indication: THROMBOLYSIS
     Route: 042
  8. RAPILYSIN [Concomitant]
     Indication: THROMBOLYSIS
     Route: 042
  9. BISOPROLOL [Concomitant]
     Route: 048
  10. MAGNESIUM [Concomitant]
     Route: 042
  11. METOCLOPRAMIDE [Concomitant]
     Route: 042
  12. METOCLOPRAMIDE [Concomitant]
     Route: 042
  13. METOPROLOL SUCCINATE [Concomitant]
     Route: 048
  14. MORPHINE [Concomitant]
     Route: 042
  15. NICOTINE [Concomitant]
     Dosage: 1 DF
     Route: 062
  16. NITROCINE [Concomitant]
  17. ONDANSETRON [Concomitant]
     Route: 042
  18. RAMIPRIL [Concomitant]
     Route: 048
  19. SERETIDE [Concomitant]
     Route: 055
  20. SPIRIVA [Concomitant]
     Route: 055
  21. TEMAZEPAM [Concomitant]
     Route: 048
  22. ATORVASTATIN CALCIUM [Concomitant]
     Route: 048

REACTIONS (4)
  - GASTROINTESTINAL HAEMORRHAGE [None]
  - HAEMATOMA [None]
  - RENAL FAILURE ACUTE [None]
  - RETROPERITONEAL HAEMORRHAGE [None]
